FAERS Safety Report 26086974 (Version 1)
Quarter: 2025Q4

REPORT INFORMATION
  Report Type: Spontaneous
  Country: EU (occurrence: EU)
  Receive Date: 20251125
  Receipt Date: 20251125
  Transmission Date: 20260117
  Serious: Yes (Hospitalization, Other)
  Sender: RANBAXY
  Company Number: EU-SUN PHARMACEUTICAL INDUSTRIES LTD-2025R1-537545

PATIENT
  Age: 57 Year
  Sex: Female

DRUGS (2)
  1. PENTAZOCINE [Suspect]
     Active Substance: PENTAZOCINE
     Indication: Analgesic therapy
     Dosage: 14-20 VIALS/DAY OVER SIX MONTHS
     Route: 030
  2. PENTAZOCINE [Suspect]
     Active Substance: PENTAZOCINE
     Indication: Thermal burn
     Dosage: OVERDOSE OF 22 VIALS
     Route: 030

REACTIONS (8)
  - Drug dependence [Unknown]
  - Suicidal ideation [Unknown]
  - Overdose [Unknown]
  - Diabetes mellitus [Unknown]
  - Mixed connective tissue disease [Unknown]
  - Spinal osteoarthritis [Unknown]
  - Raynaud^s phenomenon [Unknown]
  - Socioeconomic precarity [Unknown]
